FAERS Safety Report 23208656 (Version 2)
Quarter: 2023Q4

REPORT INFORMATION
  Report Type: Report from Study
  Country: US (occurrence: US)
  Receive Date: 20231121
  Receipt Date: 20231122
  Transmission Date: 20240110
  Serious: No
  Sender: FDA-Public Use
  Company Number: US-002147023-NVSC2023US244376

PATIENT
  Sex: Female

DRUGS (1)
  1. COSENTYX [Suspect]
     Active Substance: SECUKINUMAB
     Indication: Hidradenitis
     Dosage: 300 MG, Q4W
     Route: 058
     Dates: start: 20230911, end: 20230918

REACTIONS (16)
  - Hidradenitis [Unknown]
  - Pain [Unknown]
  - Pruritus [Unknown]
  - Palmoplantar pustulosis [Unknown]
  - Axillary mass [Unknown]
  - Rash [Unknown]
  - Pustular psoriasis [Unknown]
  - Dermatitis psoriasiform [Unknown]
  - Fistula [Unknown]
  - Erythema [Unknown]
  - Haemorrhage [Unknown]
  - Subcutaneous abscess [Unknown]
  - Nodule [Unknown]
  - Device malfunction [Unknown]
  - Rubber sensitivity [Unknown]
  - Drug ineffective [Unknown]
